FAERS Safety Report 4306781-X (Version None)
Quarter: 2004Q1

REPORT INFORMATION
  Report Type: 
  Country: None (occurrence: None)
  Receive Date: 20040225
  Receipt Date: 20040210
  Transmission Date: 20041129
  Serious: Yes (Hospitalization)
  Sender: FDA-Public Use
  Company Number: T02-CAN-02168-01

PATIENT
  Age: 53 Year
  Sex: Male

DRUGS (9)
  1. CELEXA [Suspect]
     Dosage: NA
  2. PLACEBO (UNBLINDED) [Suspect]
     Indication: DEPRESSION
     Dosage: 20 MG QD; PO
     Route: 048
     Dates: start: 20020812
  3. ATENOLOL [Concomitant]
  4. ADALAT [Concomitant]
  5. ZESTRIL [Concomitant]
  6. ACTOS (PIOGLITOZONE) [Concomitant]
  7. LIPITOR [Concomitant]
  8. OXYCOCET [Concomitant]
  9. ACETYLSALICYLIC ACID SRT [Concomitant]

REACTIONS (5)
  - BRADYCARDIA [None]
  - CHEST PAIN [None]
  - DIZZINESS [None]
  - HYPOGLYCAEMIA [None]
  - HYPOTENSION [None]
